FAERS Safety Report 8558591-5 (Version None)
Quarter: 2012Q3

REPORT INFORMATION
  Report Type: 
  Country: None (occurrence: None)
  Receive Date: 20120801
  Receipt Date: 20120711
  Transmission Date: 20120928
  Serious: No
  Sender: FDA-Public Use
  Company Number: US-ASTRAZENECA-2012SE47935

PATIENT
  Age: 54 Year
  Sex: Female

DRUGS (2)
  1. SYMBICORT [Suspect]
     Indication: PERTUSSIS
     Dosage: 1 PUFF BID
     Route: 055
  2. SYMBICORT [Suspect]
     Indication: DYSPNOEA
     Dosage: 1 PUFF BID
     Route: 055

REACTIONS (3)
  - INTENTIONAL DRUG MISUSE [None]
  - OFF LABEL USE [None]
  - PERTUSSIS [None]
